FAERS Safety Report 8322282-6 (Version None)
Quarter: 2012Q2

REPORT INFORMATION
  Report Type: 
  Country: None (occurrence: None)
  Receive Date: 20120430
  Receipt Date: 20120416
  Transmission Date: 20120825
  Serious: Yes (Hospitalization, Other)
  Sender: FDA-Public Use
  Company Number: PHHY2011JP55867

PATIENT
  Age: 40 Year
  Sex: Female

DRUGS (6)
  1. VALGANCICLOVIR [Suspect]
     Indication: CYTOMEGALOVIRUS INFECTION
     Dosage: 240 MG, UNK
     Route: 048
     Dates: start: 20100201
  2. IMMUNE GLOBULIN (HUMAN) [Concomitant]
     Indication: THROMBOCYTOSIS
     Dosage: UNK UKN, UNK
  3. IMMUNE GLOBULIN (HUMAN) [Concomitant]
     Indication: PANCYTOPENIA
  4. ADRENAL CORTICAL EXTRACT [Suspect]
     Indication: SYSTEMIC LUPUS ERYTHEMATOSUS
     Dosage: 15 MG, UNK
     Route: 048
     Dates: start: 20091001
  5. NEORAL [Suspect]
     Indication: SYSTEMIC LUPUS ERYTHEMATOSUS
     Dosage: 125 MG DAILY
     Route: 048
     Dates: start: 20091001, end: 20100201
  6. STEROIDS NOS [Concomitant]
     Indication: SYSTEMIC LUPUS ERYTHEMATOSUS
     Dosage: UNK UKN, UNK

REACTIONS (12)
  - CYTOMEGALOVIRUS INFECTION [None]
  - RENAL FAILURE [None]
  - PLATELET COUNT DECREASED [None]
  - IDIOPATHIC THROMBOCYTOPENIC PURPURA [None]
  - IMMUNOGLOBULINS DECREASED [None]
  - BLOOD CREATININE INCREASED [None]
  - ABDOMINAL PAIN [None]
  - THROMBOCYTOSIS [None]
  - SYSTEMIC LUPUS ERYTHEMATOSUS [None]
  - BLOOD POTASSIUM INCREASED [None]
  - PANCYTOPENIA [None]
  - BLOOD UREA INCREASED [None]
